FAERS Safety Report 7099628-2 (Version None)
Quarter: 2010Q4

REPORT INFORMATION
  Report Type: 
  Country: None (occurrence: None)
  Receive Date: 20101104
  Receipt Date: 20101025
  Transmission Date: 20110411
  Serious: Yes (Death, Hospitalization, Other)
  Sender: FDA-Public Use
  Company Number: 2010AC000293

PATIENT
  Age: 55 Year
  Sex: Male

DRUGS (26)
  1. DIGOXIN [Suspect]
     Dosage: (0.125 MG; PO) (0.125 MG; TIW)
     Route: 048
     Dates: start: 20060301, end: 20080101
  2. DIGOXIN [Suspect]
     Dosage: (0.125 MG; PO) (0.125 MG; TIW)
     Route: 048
     Dates: start: 20080204
  3. WELCHOL [Concomitant]
  4. DILTIAZEM [Concomitant]
  5. PERCOCET [Concomitant]
  6. WARFARIN [Concomitant]
  7. NEXIUM [Concomitant]
  8. TRICOR [Concomitant]
  9. CIPRO [Concomitant]
  10. FORRENOL [Concomitant]
  11. METOPROLOL [Concomitant]
  12. VITAMIN B [Concomitant]
  13. BACLOFEN [Concomitant]
  14. SENSIPAR [Concomitant]
  15. VANCOMYCIN [Concomitant]
  16. ROCEPHIN [Concomitant]
  17. AVELOX [Concomitant]
  18. VICODIN [Concomitant]
  19. VALIUM [Concomitant]
  20. VITAMIN K TAB [Concomitant]
  21. DOPAMIDE [Concomitant]
  22. AMIODARONE HCL [Concomitant]
  23. LANTUS [Concomitant]
  24. NOVOLIN 70/30 [Concomitant]
  25. PROTONIX [Concomitant]
  26. DILAUDID [Concomitant]

REACTIONS (30)
  - ABASIA [None]
  - ANXIETY [None]
  - ARTHRALGIA [None]
  - ASTHENIA [None]
  - ATRIAL FIBRILLATION [None]
  - BLOOD BILIRUBIN INCREASED [None]
  - CARDIAC DISORDER [None]
  - CARDIOACTIVE DRUG LEVEL DECREASED [None]
  - CARDIOACTIVE DRUG LEVEL INCREASED [None]
  - CATHETER SITE PAIN [None]
  - COUGH [None]
  - DEVICE RELATED SEPSIS [None]
  - DYSPHAGIA [None]
  - ECONOMIC PROBLEM [None]
  - ENCEPHALOPATHY [None]
  - FALL [None]
  - GOUT [None]
  - HEART RATE INCREASED [None]
  - HYPOTENSION [None]
  - INTERNATIONAL NORMALISED RATIO INCREASED [None]
  - LEFT VENTRICULAR HYPERTROPHY [None]
  - MULTIPLE INJURIES [None]
  - OEDEMA PERIPHERAL [None]
  - PAIN [None]
  - PAIN IN EXTREMITY [None]
  - PULMONARY OEDEMA [None]
  - RASH [None]
  - STAPHYLOCOCCAL SEPSIS [None]
  - SUBARACHNOID HAEMORRHAGE [None]
  - THERAPEUTIC AGENT TOXICITY [None]
